FAERS Safety Report 9859106 (Version 2)
Quarter: 2014Q3

REPORT INFORMATION
  Report Type: Spontaneous
  Country: US (occurrence: US)
  Receive Date: 20140131
  Receipt Date: 20140821
  Transmission Date: 20150326
  Serious: Yes (Other)
  Sender: FDA-Public Use
  Company Number: US-AMGEN-USASP2014005565

PATIENT
  Age: 84 Year
  Sex: Male

DRUGS (14)
  1. VITAMIN D                          /00107901/ [Concomitant]
     Active Substance: ERGOCALCIFEROL
     Dosage: 1200 MG, QD/50000 IU QWK
  2. LOVAZA [Concomitant]
     Active Substance: OMEGA-3-ACID ETHYL ESTERS
     Dosage: 2 G, QD/IN THE AM
  3. NITROGLYCERIN. [Concomitant]
     Active Substance: NITROGLYCERIN
     Dosage: UNK UNK, AS NECESSARY
  4. PROTONIX [Concomitant]
     Active Substance: PANTOPRAZOLE SODIUM
     Dosage: 40 MG, UNK
  5. ASA [Concomitant]
     Active Substance: ASPIRIN
     Dosage: 81 MG, UNK
  6. PLAVIX [Concomitant]
     Active Substance: CLOPIDOGREL BISULFATE
     Dosage: 75 MG, UNK
  7. ZOFRAN                             /00955301/ [Concomitant]
     Active Substance: ONDANSETRON HYDROCHLORIDE
     Dosage: 4 MG, QD/ IN AM
  8. CALCIUM [Concomitant]
     Active Substance: CALCIUM
     Dosage: 1200 MG,/IN THE PM
  9. ALLOPURINOL. [Concomitant]
     Active Substance: ALLOPURINOL
     Dosage: 100 MG, QD
  10. LASIX [Concomitant]
     Active Substance: FUROSEMIDE
     Dosage: 40 MG, QD
  11. PROLIA [Suspect]
     Active Substance: DENOSUMAB
     Indication: OSTEOPENIA
     Route: 065
  12. COREG CR [Concomitant]
     Active Substance: CARVEDILOL PHOSPHATE
     Dosage: 10 MG, UNK
  13. ZESTRIL [Concomitant]
     Active Substance: LISINOPRIL
     Dosage: 2.5 MG, QD/ AT NOON
  14. POTASSIUM [Concomitant]
     Active Substance: POTASSIUM
     Dosage: 10 MEQ, QD

REACTIONS (7)
  - Neuropathy peripheral [Not Recovered/Not Resolved]
  - Nausea [Not Recovered/Not Resolved]
  - Stress [Unknown]
  - Insomnia [Recovering/Resolving]
  - Depression [Unknown]
  - Blood cholesterol abnormal [Unknown]
  - Drug ineffective [Unknown]

NARRATIVE: CASE EVENT DATE: 2013
